FAERS Safety Report 18719195 (Version 5)
Quarter: 2022Q2

REPORT INFORMATION
  Report Type: Spontaneous
  Country: US (occurrence: US)
  Receive Date: 20210108
  Receipt Date: 20220426
  Transmission Date: 20220721
  Serious: No
  Sender: FDA-Public Use
  Company Number: US-PFIZER INC-2021008203

PATIENT
  Age: 72 Year
  Sex: Female

DRUGS (2)
  1. IBRANCE [Suspect]
     Active Substance: PALBOCICLIB
     Dosage: 125 MG
  2. IBRANCE [Suspect]
     Active Substance: PALBOCICLIB
     Dosage: 100 MG, CYCLIC (DAILY FOR 21 DAYS ON AND 7 OFF )
     Dates: start: 202009

REACTIONS (13)
  - Circumstance or information capable of leading to medication error [Unknown]
  - Gastrooesophageal reflux disease [Unknown]
  - Tooth loss [Unknown]
  - Dry mouth [Unknown]
  - Glossitis [Unknown]
  - Skin exfoliation [Unknown]
  - Vulvovaginal dryness [Unknown]
  - Dry skin [Unknown]
  - Hiatus hernia [Unknown]
  - Alopecia [Unknown]
  - Jaw disorder [Unknown]
  - White blood cell count decreased [Unknown]
  - Illness [Unknown]
